FAERS Safety Report 4700099-9 (Version None)
Quarter: 2005Q2

REPORT INFORMATION
  Report Type: 
  Country: None (occurrence: None)
  Receive Date: 20050627
  Receipt Date: 20050616
  Transmission Date: 20051028
  Serious: Yes (Death)
  Sender: FDA-Public Use
  Company Number: DE-AMGEN-UK139015

PATIENT
  Sex: Male

DRUGS (2)
  1. MIMPARA [Suspect]
     Indication: HYPERPARATHYROIDISM SECONDARY
     Route: 065
     Dates: start: 20050401
  2. IMMUNOSUPPRESSANTS [Concomitant]
     Route: 065

REACTIONS (1)
  - HEPATIC FAILURE [None]
